FAERS Safety Report 5583409-2 (Version None)
Quarter: 2007Q4

REPORT INFORMATION
  Report Type: 
  Country: None (occurrence: None)
  Receive Date: 20071231
  Receipt Date: 20071226
  Transmission Date: 20080405
  Serious: Yes (Death)
  Sender: FDA-Public Use
  Company Number: 163-21880-07111611

PATIENT
  Age: 64 Year
  Sex: Female

DRUGS (2)
  1. REVLIMID [Suspect]
     Indication: MULTIPLE MYELOMA
     Dosage: DAILY X21 DAYS EVERY 28 DAYS, ORAL ; X21 DAYS/28 DAYS, ORAL
     Route: 048
     Dates: start: 20070823, end: 20071001
  2. REVLIMID [Suspect]
     Indication: MULTIPLE MYELOMA
     Dosage: DAILY X21 DAYS EVERY 28 DAYS, ORAL ; X21 DAYS/28 DAYS, ORAL
     Route: 048
     Dates: start: 20071101

REACTIONS (2)
  - PNEUMONIA [None]
  - RESPIRATORY FAILURE [None]
